FAERS Safety Report 24342598 (Version 1)
Quarter: 2024Q3

REPORT INFORMATION
  Report Type: Spontaneous
  Country: FR (occurrence: FR)
  Receive Date: 20240920
  Receipt Date: 20240920
  Transmission Date: 20241017
  Serious: Yes (Hospitalization, Other)
  Sender: HIKMA
  Company Number: FR-HIKMA PHARMACEUTICALS-FR-H14001-24-08581

PATIENT
  Age: 59 Year
  Sex: Female
  Weight: 57.5 kg

DRUGS (9)
  1. CARBOPLATIN [Suspect]
     Active Substance: CARBOPLATIN
     Indication: Papillary serous endometrial carcinoma
     Dosage: UNKNOWN
     Route: 042
     Dates: start: 20240418, end: 20240527
  2. PACLITAXEL [Suspect]
     Active Substance: PACLITAXEL
     Indication: Papillary serous endometrial carcinoma
     Dosage: 175 MILLIGRAM/SQ. METER
     Route: 042
     Dates: start: 20240418, end: 20240527
  3. DOSTARLIMAB [Concomitant]
     Active Substance: DOSTARLIMAB
     Indication: Papillary serous endometrial carcinoma
     Dosage: 500 MILLIGRAM, SINGLE
     Route: 042
     Dates: start: 20240418, end: 20240418
  4. EMEND [Concomitant]
     Active Substance: APREPITANT
     Dosage: 125 MILLIGRAM
     Route: 065
     Dates: start: 20240418, end: 20240418
  5. EMEND [Concomitant]
     Active Substance: APREPITANT
     Indication: Prophylaxis of nausea and vomiting
     Dosage: 80 MILLIGRAM, QD
     Route: 065
     Dates: start: 20240419, end: 20240420
  6. ONDANSETRON [Concomitant]
     Active Substance: ONDANSETRON
     Indication: Prophylaxis of nausea and vomiting
     Dosage: UNKNOWN
     Route: 065
     Dates: start: 20240418, end: 20240418
  7. PEGFILGRASTIM [Concomitant]
     Active Substance: PEGFILGRASTIM
     Indication: Colony stimulating factor therapy
     Dosage: 6 MILLIGRAM
     Route: 058
     Dates: start: 20240419, end: 20240419
  8. METHYLPREDNISOLONE SODIUM SUCCINATE [Concomitant]
     Active Substance: METHYLPREDNISOLONE SODIUM SUCCINATE
     Dosage: 40 MILLIGRAM, SINGLE
     Route: 048
     Dates: start: 20240421, end: 20240421
  9. METHYLPREDNISOLONE SODIUM SUCCINATE [Concomitant]
     Active Substance: METHYLPREDNISOLONE SODIUM SUCCINATE
     Indication: Product used for unknown indication
     Dosage: 60 MILLIGRAM, QD
     Route: 048
     Dates: start: 20240419, end: 20240420

REACTIONS (3)
  - Rash maculo-papular [Recovering/Resolving]
  - Arthralgia [Recovered/Resolved]
  - Pyrexia [Recovered/Resolved]

NARRATIVE: CASE EVENT DATE: 20240419
